FAERS Safety Report 5368228-4 (Version None)
Quarter: 2007Q2

REPORT INFORMATION
  Report Type: 
  Country: None (occurrence: None)
  Receive Date: 20070625
  Receipt Date: 20070613
  Transmission Date: 20071010
  Serious: Yes (Death, Other)
  Sender: FDA-Public Use
  Company Number: PHHO2007US03305

PATIENT
  Age: 48 Year
  Sex: Female
  Weight: 145.5 kg

DRUGS (27)
  1. TEGASEROD [Suspect]
     Indication: CONSTIPATION
     Route: 048
     Dates: start: 20061107
  2. PAXIL [Concomitant]
     Indication: ANXIETY
  3. CLONAZEPAM [Concomitant]
     Indication: RESTLESS LEGS SYNDROME
  4. QUININE SULFATE [Concomitant]
     Indication: MUSCLE SPASMS
  5. MAXAIR [Concomitant]
     Indication: ASTHMA
  6. BENADRYL [Concomitant]
     Indication: HYPERSENSITIVITY
  7. MIRAPEX [Concomitant]
     Indication: RESTLESS LEGS SYNDROME
  8. ASTELIN [Concomitant]
     Indication: SLEEP APNOEA SYNDROME
  9. ZANTAC [Concomitant]
     Indication: GASTROOESOPHAGEAL REFLUX DISEASE
  10. LIPITOR [Concomitant]
     Indication: HYPERCHOLESTEROLAEMIA
  11. TOPAMAX [Concomitant]
     Indication: SPINAL COLUMN STENOSIS
  12. METHADONE HCL [Concomitant]
     Indication: SPINAL COLUMN STENOSIS
  13. DETROL [Concomitant]
  14. LAXATIVES [Concomitant]
     Indication: CONSTIPATION
  15. AZMACORT [Concomitant]
  16. PREVACID [Concomitant]
  17. METOCLOPRAMIDE [Concomitant]
  18. ZANAFLEX [Concomitant]
  19. CELEBREX [Concomitant]
  20. NASACORT [Concomitant]
  21. ALLEGRA [Concomitant]
  22. IBUPROFEN [Concomitant]
  23. COUMADIN [Concomitant]
  24. OXYCONTIN [Concomitant]
  25. OXYCODONE HCL [Concomitant]
  26. NYSTATIN [Concomitant]
  27. ARISTOCORT [Concomitant]

REACTIONS (6)
  - ACCIDENTAL OVERDOSE [None]
  - ARTERIOSCLEROSIS CORONARY ARTERY [None]
  - CARDIOMEGALY [None]
  - MENINGIOMA [None]
  - PNEUMONIA [None]
  - PULMONARY OEDEMA [None]
